FAERS Safety Report 4660173-2 (Version None)
Quarter: 2005Q2

REPORT INFORMATION
  Report Type: 
  Country: None (occurrence: None)
  Receive Date: 20050427
  Receipt Date: 20050211
  Transmission Date: 20051028
  Serious: No
  Sender: FDA-Public Use
  Company Number: 212080

PATIENT
  Age: 66 Year
  Sex: Male
  Weight: 98.4 kg

DRUGS (16)
  1. XOLAIR [Suspect]
     Indication: ASTHMA
     Dosage: 150 MG, Q4W, SUBCUTANEOUS;  300 MG
     Route: 058
     Dates: start: 20041011, end: 20050106
  2. XOLAIR [Suspect]
     Indication: ASTHMA
     Dosage: 150 MG, Q4W, SUBCUTANEOUS;  300 MG
     Route: 058
     Dates: start: 20050106, end: 20050106
  3. PLAVIX [Concomitant]
  4. VOLMAX (ALBUTEROL, ALBUTEROL SULFATE) [Concomitant]
  5. GLUCOPHAGE [Concomitant]
  6. AVANDIA [Concomitant]
  7. SINGULAIR [Concomitant]
  8. LASIX [Concomitant]
  9. POTASSIUM (POTASSIUM NOS) [Concomitant]
  10. XANAX [Concomitant]
  11. ASPIRIN [Concomitant]
  12. QVAR (BECLOMETHASONE DIPROPIONATE) [Concomitant]
  13. PREVACID [Concomitant]
  14. REGLAN [Concomitant]
  15. CARAFATE [Concomitant]
  16. MOBIC [Concomitant]

REACTIONS (1)
  - MYALGIA [None]
